FAERS Safety Report 24769502 (Version 2)
Quarter: 2025Q1

REPORT INFORMATION
  Report Type: Spontaneous
  Country: US (occurrence: US)
  Receive Date: 20241224
  Receipt Date: 20250205
  Transmission Date: 20250409
  Serious: Yes (Other)
  Sender: ALEXION PHARMACEUTICALS
  Company Number: US-AstraZeneca-CH-00769401AP

PATIENT

DRUGS (1)
  1. BYDUREON BCISE [Suspect]
     Active Substance: EXENATIDE
     Indication: Product used for unknown indication
     Dosage: 2 MILLIGRAM, QW
     Route: 065

REACTIONS (9)
  - Macular dystrophy congenital [Unknown]
  - Paralysis [Unknown]
  - Anxiety [Unknown]
  - Respiratory syncytial virus test [Unknown]
  - Disturbance in attention [Unknown]
  - Arthritis [Unknown]
  - Medication dilution [Unknown]
  - Spinal disorder [Unknown]
  - Needle issue [Unknown]
